FAERS Safety Report 7338337-9 (Version None)
Quarter: 2011Q1

REPORT INFORMATION
  Report Type: 
  Country: None (occurrence: None)
  Receive Date: 20110308
  Receipt Date: 20110223
  Transmission Date: 20110831
  Serious: Yes (Hospitalization, Other)
  Sender: FDA-Public Use
  Company Number: US-CELGENEUS-163-21880-11022938

PATIENT
  Sex: Female

DRUGS (9)
  1. ARIMIDEX [Concomitant]
     Dosage: 1 MILLIGRAM
     Route: 048
     Dates: start: 20100930
  2. DARVOCET [Concomitant]
     Dosage: 500
     Route: 048
     Dates: start: 20100930
  3. METFORMIN HCL [Concomitant]
     Dosage: 750 MILLIGRAM
     Route: 048
     Dates: start: 20100930
  4. REVLIMID [Suspect]
     Dosage: 10 MILLIGRAM
     Route: 048
     Dates: start: 20101001, end: 20110201
  5. CITALOPRAM [Concomitant]
     Dosage: 20 MILLIGRAM
     Route: 048
     Dates: start: 20101207
  6. VITAMIN D [Concomitant]
     Dosage: 1000 UNIT
     Route: 048
     Dates: start: 20100930
  7. LOVASTATIN [Concomitant]
     Dosage: 40 MILLIGRAM
     Route: 048
     Dates: start: 20100930
  8. ASPIRIN [Concomitant]
     Dosage: 81 MILLIGRAM
     Route: 048
     Dates: start: 20100930
  9. SYNTHROID [Concomitant]
     Dosage: 75 MICROGRAM
     Route: 048
     Dates: start: 20100930

REACTIONS (2)
  - ABDOMINAL PAIN [None]
  - SPLEEN DISORDER [None]
